FAERS Safety Report 5235127-8 (Version None)
Quarter: 2007Q1

REPORT INFORMATION
  Report Type: 
  Country: None (occurrence: None)
  Receive Date: 20070207
  Receipt Date: 20070130
  Transmission Date: 20070707
  Serious: Yes (Life-Threatening, Other)
  Sender: FDA-Public Use
  Company Number: 235932

PATIENT
  Age: 56 Year
  Sex: Female

DRUGS (4)
  1. MABTHERA(RITUXIMAB) CONC FOR SOLUTION FOR INFUSION [Suspect]
     Indication: CRYOGLOBULINAEMIA
     Dosage: 375 MG/M2,  1/WEEK, INTRAVENOUS
     Route: 042
  2. CORTICOSTEROID (UNK INGREDIENTS) (CORTICOSTEROID NOS) [Concomitant]
  3. TACROLIMUS (TACROLIMUS) [Concomitant]
  4. MYCOPHENOLATE MOFETIL [Concomitant]

REACTIONS (3)
  - HERPES SIMPLEX [None]
  - LUNG DISORDER [None]
  - RENAL FAILURE [None]
